FAERS Safety Report 7687905-3 (Version None)
Quarter: 2011Q3

REPORT INFORMATION
  Report Type: 
  Country: None (occurrence: None)
  Receive Date: 20110817
  Receipt Date: 20110808
  Transmission Date: 20111222
  Serious: Yes (Life-Threatening, Other)
  Sender: FDA-Public Use
  Company Number: US-CEPHALON-2009002753

PATIENT
  Sex: Female

DRUGS (3)
  1. TYSABRI [Concomitant]
     Indication: MULTIPLE SCLEROSIS
     Dates: start: 20070201
  2. PROVIGIL [Suspect]
     Indication: FATIGUE
     Route: 048
  3. PROVIGIL [Suspect]
     Indication: MULTIPLE SCLEROSIS
     Route: 048
     Dates: start: 20080101

REACTIONS (13)
  - ASTHMA [None]
  - HYPERSENSITIVITY [None]
  - IRRITABILITY [None]
  - SKIN EXFOLIATION [None]
  - STEVENS-JOHNSON SYNDROME [None]
  - SKIN LESION [None]
  - VULVAL DISORDER [None]
  - ANAPHYLACTIC SHOCK [None]
  - LOCAL SWELLING [None]
  - RASH [None]
  - PRURITUS [None]
  - FATIGUE [None]
  - DRY SKIN [None]
